FAERS Safety Report 8355854-3 (Version None)
Quarter: 2012Q2

REPORT INFORMATION
  Report Type: 
  Country: None (occurrence: None)
  Receive Date: 20120514
  Receipt Date: 20120503
  Transmission Date: 20120825
  Serious: Yes (Hospitalization)
  Sender: FDA-Public Use
  Company Number: CN-BRISTOL-MYERS SQUIBB COMPANY-16360919

PATIENT
  Age: 39 Year
  Sex: Female

DRUGS (6)
  1. ETOPOSIDE [Suspect]
     Indication: NON-SMALL CELL LUNG CANCER STAGE III
     Dosage: DOSAGE-ON DAYS ONE TO FIVE
     Route: 065
     Dates: start: 20100920, end: 20101025
  2. TROPISETRON [Concomitant]
     Indication: ANTIEMETIC SUPPORTIVE CARE
     Dates: start: 20101019
  3. CISPLATIN [Suspect]
     Indication: NON-SMALL CELL LUNG CANCER STAGE III
     Dosage: DOSAGE-ON DAYS ONE TO EIGHT
     Route: 065
     Dates: start: 20100920, end: 20101025
  4. VITAMIN B-12 [Concomitant]
     Indication: PROPHYLAXIS
  5. FOLIC ACID [Concomitant]
     Indication: PROPHYLAXIS
  6. DEXAMETHASONE [Concomitant]
     Indication: PROPHYLAXIS
     Dates: start: 20101015, end: 20101028

REACTIONS (2)
  - RADIATION OESOPHAGITIS [None]
  - SUPERIOR VENA CAVA SYNDROME [None]
